FAERS Safety Report 13735559 (Version 1)
Quarter: 2017Q3

REPORT INFORMATION
  Report Type: Spontaneous
  Country: US (occurrence: US)
  Receive Date: 20170709
  Receipt Date: 20170709
  Transmission Date: 20171127
  Serious: Yes (Life-Threatening, Disabling)
  Sender: FDA-Public Use
  Company Number: None

PATIENT
  Age: 46 Year
  Sex: Female
  Weight: 72 kg

DRUGS (4)
  1. CENTRUM MULTIVITAMIN [Concomitant]
  2. KLONOPIN [Suspect]
     Active Substance: CLONAZEPAM
     Indication: PANIC ATTACK
     Route: 048
  3. KLONOPIN [Suspect]
     Active Substance: CLONAZEPAM
     Indication: PROPHYLAXIS
     Route: 048
  4. VITAMIN D [Concomitant]
     Active Substance: CHOLECALCIFEROL

REACTIONS (20)
  - Mood swings [None]
  - Vibratory sense increased [None]
  - Insomnia [None]
  - Neuralgia [None]
  - Amnesia [None]
  - Panic attack [None]
  - Poor quality sleep [None]
  - Disturbance in attention [None]
  - Fear [None]
  - Headache [None]
  - Muscular weakness [None]
  - Anxiety [None]
  - Heart rate increased [None]
  - Derealisation [None]
  - Myalgia [None]
  - Palpitations [None]
  - Chest discomfort [None]
  - Head discomfort [None]
  - Suicidal ideation [None]
  - Depersonalisation/derealisation disorder [None]

NARRATIVE: CASE EVENT DATE: 20130901
